FAERS Safety Report 18143952 (Version 2)
Quarter: 2020Q3

REPORT INFORMATION
  Report Type: Spontaneous
  Country: JP (occurrence: JP)
  Receive Date: 20200813
  Receipt Date: 20200819
  Transmission Date: 20201103
  Serious: Yes (Other)
  Sender: FDA-Public Use
  Company Number: JP-AMGEN-JPNSP2020117322

PATIENT
  Age: 63 Year
  Sex: Male

DRUGS (3)
  1. NESP [Suspect]
     Active Substance: DARBEPOETIN ALFA
     Indication: NEPHROGENIC ANAEMIA
     Dosage: 60 UG, 1X/4 WEEKS
     Route: 058
     Dates: start: 20190218, end: 20200316
  2. NESP [Suspect]
     Active Substance: DARBEPOETIN ALFA
     Dosage: 60 UG
     Route: 058
     Dates: start: 20200708, end: 20200708
  3. NESP [Suspect]
     Active Substance: DARBEPOETIN ALFA
     Dosage: 120 UG, 1X/4 WEEKS
     Route: 058
     Dates: start: 20200608, end: 20200706

REACTIONS (1)
  - Colon cancer [Unknown]
